FAERS Safety Report 7591509-0 (Version None)
Quarter: 2011Q2

REPORT INFORMATION
  Report Type: 
  Country: None (occurrence: None)
  Receive Date: 20110603
  Receipt Date: 20110307
  Transmission Date: 20111010
  Serious: No
  Sender: FDA-Public Use
  Company Number: 2011SP010456

PATIENT
  Age: 20 Year
  Sex: Male

DRUGS (3)
  1. LUVOX [Concomitant]
  2. SAPHRIS [Suspect]
     Indication: BIPOLAR I DISORDER
     Dosage: 10 MG;ONCE;SL
     Route: 060
     Dates: start: 20110301, end: 20110301
  3. CLONOPIN [Concomitant]

REACTIONS (2)
  - NAUSEA [None]
  - DYSGEUSIA [None]
